FAERS Safety Report 10957022 (Version 1)
Quarter: 2015Q1

REPORT INFORMATION
  Report Type: Spontaneous
  Country: KR (occurrence: None)
  Receive Date: 20150324
  Receipt Date: 20150324
  Transmission Date: 20150721
  Serious: Yes (Hospitalization)
  Sender: FDA-Public Use
  Company Number: KP-DRAXIINC-000185

PATIENT
  Age: 68 Year
  Sex: Female

DRUGS (4)
  1. SODIUM IODIDE I 131 [Suspect]
     Active Substance: SODIUM IODIDE I-131
     Indication: RADIOACTIVE IODINE THERAPY
  2. TELMISARTAN. [Concomitant]
     Active Substance: TELMISARTAN
  3. HYDROCHLOROTHIAZIDE. [Concomitant]
     Active Substance: HYDROCHLOROTHIAZIDE
  4. AMLODIPINE [Concomitant]
     Active Substance: AMLODIPINE BESYLATE

REACTIONS (3)
  - Heart rate increased [None]
  - Hyponatraemia [None]
  - Blood pressure systolic increased [None]

NARRATIVE: CASE EVENT DATE: 20131004
